FAERS Safety Report 8179469-5 (Version None)
Quarter: 2012Q1

REPORT INFORMATION
  Report Type: 
  Country: None (occurrence: None)
  Receive Date: 20120302
  Receipt Date: 20120222
  Transmission Date: 20120608
  Serious: Yes (Hospitalization, Other)
  Sender: FDA-Public Use
  Company Number: US-JNJFOC-20120211366

PATIENT
  Age: 83 Year
  Sex: Female
  Weight: 72.58 kg

DRUGS (9)
  1. TRAMADOL HCL [Suspect]
     Indication: PAIN
     Dosage: 1 EVERY 4 TO 6 HOURS AS NEEDED
     Route: 048
  2. LEVOTHYROXINE SODIUM [Concomitant]
     Indication: THYROID DISORDER
     Route: 048
  3. ACETAMINOPHEN [Suspect]
     Indication: PAIN
     Route: 048
  4. OMEPRAZOLE [Concomitant]
     Indication: GASTROOESOPHAGEAL REFLUX DISEASE
     Route: 048
  5. ARICEPT [Concomitant]
     Indication: DEMENTIA
     Route: 048
  6. ACETAMINOPHEN [Suspect]
     Route: 048
  7. ACETAMINOPHEN [Suspect]
     Indication: PAIN
     Route: 048
  8. TRAMADOL HCL [Suspect]
     Indication: PAIN
     Route: 048
  9. ACETAMINOPHEN [Suspect]
     Route: 048

REACTIONS (9)
  - URINARY TRACT INFECTION [None]
  - HEAD INJURY [None]
  - ASTHENIA [None]
  - FALL [None]
  - LOWER LIMB FRACTURE [None]
  - DRUG INEFFECTIVE [None]
  - KNEE DEFORMITY [None]
  - FACE INJURY [None]
  - ANKLE DEFORMITY [None]
